FAERS Safety Report 11814032 (Version 2)
Quarter: 2015Q4

REPORT INFORMATION
  Report Type: Spontaneous
  Country: JP (occurrence: JP)
  Receive Date: 20151209
  Receipt Date: 20151216
  Transmission Date: 20160305
  Serious: Yes (Hospitalization, Other)
  Sender: FDA-Public Use
  Company Number: JP-PFIZER INC-2015299189

PATIENT
  Age: 57 Year
  Sex: Female

DRUGS (10)
  1. DEPAS [Concomitant]
     Active Substance: ETIZOLAM
     Dosage: 1 MG, 3X/DAY
     Route: 048
     Dates: start: 20150115
  2. LYRICA [Suspect]
     Active Substance: PREGABALIN
     Dosage: 25 MG, 2X/DAY
     Route: 048
     Dates: start: 20130926, end: 20150415
  3. LYRICA [Suspect]
     Active Substance: PREGABALIN
     Dosage: 175 MG, DAILY (75 MG IN THE MORNING AND 100 MG IN THE EVENING)
     Route: 048
     Dates: start: 20150820, end: 20150820
  4. DICLOFENAC [Concomitant]
     Active Substance: DICLOFENAC
     Dosage: 25 MG, 3X/DAY
     Route: 048
     Dates: start: 20140623
  5. TRAMAL [Suspect]
     Active Substance: TRAMADOL
     Indication: PAIN
     Dosage: 25 MG, 2X/DAY
     Route: 048
     Dates: start: 20150115, end: 20150617
  6. LYRICA [Suspect]
     Active Substance: PREGABALIN
     Dosage: UNK
     Route: 048
     Dates: start: 20150821, end: 20150821
  7. TRAMAL [Suspect]
     Active Substance: TRAMADOL
     Dosage: 25 MG, 4X/DAY
     Route: 048
     Dates: start: 20150618, end: 20150821
  8. LYRICA [Suspect]
     Active Substance: PREGABALIN
     Dosage: 100 MG, 2X/DAY
     Route: 048
     Dates: start: 20150416, end: 20150617
  9. TAMBOCOR [Concomitant]
     Active Substance: FLECAINIDE ACETATE
     Dosage: 50 MG, 2X/DAY
     Route: 048
  10. LYRICA [Suspect]
     Active Substance: PREGABALIN
     Dosage: 75 MG, 2X/DAY
     Route: 048
     Dates: start: 20150618, end: 20150819

REACTIONS (4)
  - Ventricular extrasystoles [Unknown]
  - Road traffic accident [Unknown]
  - Loss of consciousness [Recovered/Resolved]
  - Rib fracture [Unknown]

NARRATIVE: CASE EVENT DATE: 20150821
